FAERS Safety Report 8624984-0 (Version None)
Quarter: 2012Q3

REPORT INFORMATION
  Report Type: 
  Country: None (occurrence: None)
  Receive Date: 20120827
  Receipt Date: 20120820
  Transmission Date: 20120928
  Serious: Yes (Other)
  Sender: FDA-Public Use
  Company Number: PHHY2012GB067335

PATIENT
  Age: 60 Year
  Sex: Female

DRUGS (2)
  1. MIRTAZAPINE [Suspect]
     Indication: DEPRESSION
     Dosage: 15 MG
     Dates: start: 20111101, end: 20120101
  2. SERTRALINE HYDROCHLORIDE [Concomitant]
     Indication: DEPRESSION

REACTIONS (19)
  - ANXIETY [None]
  - PYREXIA [None]
  - NECK MASS [None]
  - GASTROINTESTINAL DISORDER [None]
  - EYE PAIN [None]
  - TREMOR [None]
  - CHAPPED LIPS [None]
  - SENSATION OF FOREIGN BODY [None]
  - PARAESTHESIA [None]
  - DECREASED APPETITE [None]
  - NERVOUSNESS [None]
  - PHARYNGEAL OEDEMA [None]
  - PRURITUS [None]
  - TONGUE ERUPTION [None]
  - INSOMNIA [None]
  - WITHDRAWAL SYNDROME [None]
  - JAW DISORDER [None]
  - HYPERHIDROSIS [None]
  - OROPHARYNGEAL PAIN [None]
